FAERS Safety Report 19588406 (Version 1)
Quarter: 2021Q3

REPORT INFORMATION
  Report Type: Spontaneous
  Country: US (occurrence: US)
  Receive Date: 20210721
  Receipt Date: 20210721
  Transmission Date: 20211014
  Serious: Yes (Hospitalization)
  Sender: FDA-Public Use
  Company Number: None

PATIENT
  Sex: Male
  Weight: 110.7 kg

DRUGS (3)
  1. IRINOTECAN LIPOSOME (MM?398, ONIVYDE) [Concomitant]
     Active Substance: IRINOTECAN HYDROCHLORIDE
  2. LEUCOVORIN CALCIUM. [Suspect]
     Active Substance: LEUCOVORIN CALCIUM
  3. 5?FLUOROURACIL [Suspect]
     Active Substance: FLUOROURACIL

REACTIONS (2)
  - Nausea [None]
  - Dyspnoea [None]

NARRATIVE: CASE EVENT DATE: 20210707
